FAERS Safety Report 9120225 (Version 2)
Quarter: 2013Q1

REPORT INFORMATION
  Report Type: Spontaneous
  Country: GB (occurrence: GB)
  Receive Date: 20130226
  Receipt Date: 20130308
  Transmission Date: 20140127
  Serious: Yes (Other)
  Sender: FDA-Public Use
  Company Number: GB-ASTELLAS-2013EU001678

PATIENT
  Sex: Female

DRUGS (2)
  1. VESICARE [Suspect]
     Indication: BLADDER PROLAPSE
     Dosage: UNK
     Route: 065
  2. VESICARE [Suspect]
     Indication: URINARY INCONTINENCE

REACTIONS (12)
  - Off label use [Unknown]
  - Malaise [Unknown]
  - Mobility decreased [Unknown]
  - Pain [Unknown]
  - Cerebral artery stenosis [Unknown]
  - Hallucination, visual [Unknown]
  - Headache [Unknown]
  - Neck pain [Unknown]
  - Dyspnoea [Unknown]
  - Chills [Unknown]
  - Muscle spasms [Recovering/Resolving]
  - Muscle twitching [Recovering/Resolving]
